FAERS Safety Report 5702077-X (Version None)
Quarter: 2008Q2

REPORT INFORMATION
  Report Type: 
  Country: None (occurrence: None)
  Receive Date: 20080411
  Receipt Date: 20070607
  Transmission Date: 20081010
  Serious: Yes (Hospitalization, Other)
  Sender: FDA-Public Use
  Company Number: US-ABBOTT-07P-163-0370926-00

PATIENT
  Sex: Male
  Weight: 47.67 kg

DRUGS (4)
  1. DEPAKOTE [Suspect]
     Indication: EPILEPSY
     Route: 048
     Dates: start: 20070503, end: 20070510
  2. VALPROIC ACID [Suspect]
     Indication: EPILEPSY
     Route: 048
     Dates: start: 20070301, end: 20070503
  3. LAMOTRIGINE [Interacting]
     Indication: EPILEPSY
     Route: 048
     Dates: start: 20070301, end: 20070510
  4. LEVETIRACETAM [Suspect]
     Indication: EPILEPSY
     Dates: start: 20070510, end: 20070511

REACTIONS (5)
  - DRUG INTERACTION [None]
  - PYREXIA [None]
  - RASH [None]
  - STEVENS-JOHNSON SYNDROME [None]
  - WHITE BLOOD CELL COUNT DECREASED [None]
